FAERS Safety Report 4529549-8 (Version None)
Quarter: 2004Q4

REPORT INFORMATION
  Report Type: 
  Country: None (occurrence: None)
  Receive Date: 20041216
  Receipt Date: 20041124
  Transmission Date: 20050328
  Serious: Yes (Hospitalization)
  Sender: FDA-Public Use
  Company Number: US-MERCK-0411USA03970

PATIENT
  Sex: Female

DRUGS (3)
  1. ZETIA [Suspect]
     Route: 048
     Dates: start: 20040920
  2. LOPID [Concomitant]
     Route: 065
     Dates: end: 20041001
  3. LIPITOR [Concomitant]
     Route: 065
     Dates: end: 20041001

REACTIONS (1)
  - RHABDOMYOLYSIS [None]
